FAERS Safety Report 6347967-2 (Version None)
Quarter: 2009Q3

REPORT INFORMATION
  Report Type: 
  Country: None (occurrence: None)
  Receive Date: 20090910
  Receipt Date: 20090831
  Transmission Date: 20100115
  Serious: Yes (Hospitalization)
  Sender: FDA-Public Use
  Company Number: US-ELI_LILLY_AND_COMPANY-US200908006680

PATIENT
  Age: 81 Year
  Sex: Female

DRUGS (12)
  1. FORTEO [Suspect]
     Dosage: UNK, UNK
     Dates: start: 20080101, end: 20090801
  2. HYDROXYCHLOROQUINE SULFATE [Concomitant]
     Indication: ARTHRITIS
     Dosage: 200 MG, UNK
  3. PREDNISONE TAB [Concomitant]
     Indication: ARTHRITIS
     Dosage: 2.5 MG, UNK
  4. BENICAR [Concomitant]
     Indication: BLOOD PRESSURE
     Dosage: 40 MG, UNK
  5. METOPROLOL TARTRATE [Concomitant]
     Dosage: UNK, 2/D
  6. HYDROCHLOROTHIAZIDE [Concomitant]
     Dosage: 12.5 MG, UNK
  7. PROTONIX [Concomitant]
     Dosage: 40 MG, UNK
  8. NORVASC [Concomitant]
  9. VITAMIN D [Concomitant]
  10. CRANBERRY                          /01512301/ [Concomitant]
  11. VITAMIN B-12 [Concomitant]
  12. CALTRATE 600 + D [Concomitant]

REACTIONS (5)
  - ANAEMIA [None]
  - BLOOD PRESSURE INCREASED [None]
  - CHEST PAIN [None]
  - HERPES ZOSTER [None]
  - RENAL DISORDER [None]
